FAERS Safety Report 9914008 (Version 3)
Quarter: 2014Q1

REPORT INFORMATION
  Report Type: Spontaneous
  Country: US (occurrence: US)
  Receive Date: 20140220
  Receipt Date: 20140312
  Transmission Date: 20141002
  Serious: Yes (Hospitalization)
  Sender: FDA-Public Use
  Company Number: US-GLAXOSMITHKLINE-A0963824A

PATIENT
  Age: 76 Year
  Sex: Female

DRUGS (6)
  1. ADVAIR HFA [Suspect]
     Indication: ASTHMA
     Route: 065
     Dates: end: 201311
  2. ADVAIR HFA [Suspect]
     Indication: ASTHMA
     Dosage: 2PUFF TWICE PER DAY
     Route: 055
     Dates: start: 201311
  3. THEODUR [Concomitant]
  4. MUCINEX [Concomitant]
  5. PROAIR HFA [Concomitant]
  6. UNSPECIFIED MEDICATIONS [Concomitant]

REACTIONS (7)
  - Throat irritation [Unknown]
  - Oral candidiasis [Unknown]
  - Malaise [Unknown]
  - Ill-defined disorder [Unknown]
  - Sputum retention [Unknown]
  - Drug ineffective [Unknown]
  - Incorrect product storage [Unknown]
